FAERS Safety Report 5039089-8 (Version None)
Quarter: 2006Q2

REPORT INFORMATION
  Report Type: 
  Country: None (occurrence: None)
  Receive Date: 20060601
  Receipt Date: 20060130
  Transmission Date: 20061013
  Serious: No
  Sender: FDA-Public Use
  Company Number: 2005PV002554

PATIENT
  Age: 72 Year
  Sex: Female
  Weight: 145.151 kg

DRUGS (8)
  1. BYETTA [Suspect]
     Indication: DIABETES MELLITUS NON-INSULIN-DEPENDENT
     Dosage: SEE IMAGE
     Route: 058
     Dates: start: 20050915, end: 20051114
  2. BYETTA [Suspect]
     Indication: DIABETES MELLITUS NON-INSULIN-DEPENDENT
     Dosage: SEE IMAGE
     Route: 058
     Dates: start: 20051115
  3. GLYBURIDE [Concomitant]
  4. POTASSIUM [Concomitant]
  5. DILTIAZEM HCL [Concomitant]
  6. VASOTEC [Concomitant]
  7. LASIX [Concomitant]
  8. METAMUCIL [Concomitant]

REACTIONS (7)
  - ANOREXIA [None]
  - CONSTIPATION [None]
  - ERUCTATION [None]
  - NAUSEA [None]
  - SOMNOLENCE [None]
  - THERAPEUTIC RESPONSE UNEXPECTED [None]
  - WEIGHT DECREASED [None]
